FAERS Safety Report 4390806-X (Version None)
Quarter: 2004Q3

REPORT INFORMATION
  Report Type: 
  Country: None (occurrence: None)
  Receive Date: 20040706
  Receipt Date: 20040706
  Transmission Date: 20050211
  Serious: Yes (Other)
  Sender: FDA-Public Use
  Company Number: None

PATIENT
  Age: 14 Year
  Sex: Female
  Weight: 56.6996 kg

DRUGS (2)
  1. RISPERDAL [Suspect]
     Indication: BORDERLINE PERSONALITY DISORDER
     Dosage: 0.5 MG PO BID
     Route: 048
     Dates: start: 20040406, end: 20040412
  2. RISPERDAL [Suspect]
     Indication: THINKING ABNORMAL
     Dosage: 0.5 MG PO BID
     Route: 048
     Dates: start: 20040406, end: 20040412

REACTIONS (1)
  - UNEVALUABLE EVENT [None]
